FAERS Safety Report 10367099 (Version 3)
Quarter: 2017Q3

REPORT INFORMATION
  Report Type: Spontaneous
  Country: RU (occurrence: RU)
  Receive Date: 20140807
  Receipt Date: 20170704
  Transmission Date: 20171127
  Serious: Yes (Death, Hospitalization, Other)
  Sender: FDA-Public Use
  Company Number: RU-UCBSA-2014007704

PATIENT
  Sex: Male

DRUGS (15)
  1. VIMPAT [Suspect]
     Active Substance: LACOSAMIDE
     Dosage: 200 MG, 2X/DAY (BID)
     Route: 045
     Dates: start: 20130304, end: 201303
  2. KEPPRA [Suspect]
     Active Substance: LEVETIRACETAM
     Indication: SEIZURE
     Dosage: 250 MG, 3X/DAY (TID)
     Route: 045
     Dates: start: 20121127
  3. KEPPRA [Suspect]
     Active Substance: LEVETIRACETAM
     Dosage: 2000MG/DAY
     Route: 045
     Dates: start: 20130312, end: 201308
  4. CLONAZEPAM. [Suspect]
     Active Substance: CLONAZEPAM
     Dosage: 1 MG/DAY
     Dates: start: 20130312, end: 2013
  5. KEPPRA [Suspect]
     Active Substance: LEVETIRACETAM
     Indication: OFF LABEL USE
     Dosage: 1000 MG, 2X/DAY (BID)
     Route: 045
     Dates: start: 20130122, end: 201303
  6. DEPAKINE [Concomitant]
     Active Substance: VALPROATE SODIUM
     Indication: STATUS EPILEPTICUS
     Dosage: 1500 MG, ONCE DAILY (QD)
     Route: 048
     Dates: start: 20130304, end: 201303
  7. DEPAKINE [Concomitant]
     Active Substance: VALPROATE SODIUM
     Dosage: 1000MG/DAY
     Route: 048
     Dates: start: 20130312, end: 201308
  8. VIMPAT [Suspect]
     Active Substance: LACOSAMIDE
     Dosage: 100 MG, 2X/DAY (BID)
     Route: 045
     Dates: start: 20130312, end: 201308
  9. CLONAZEPAM. [Suspect]
     Active Substance: CLONAZEPAM
     Dosage: 6 MG, ONCE DAILY (QD)
     Dates: start: 20130123, end: 20130228
  10. KEPPRA [Suspect]
     Active Substance: LEVETIRACETAM
     Indication: STATUS EPILEPTICUS
     Dosage: 1500 MG, 2X/DAY (BID)
     Route: 045
     Dates: end: 201301
  11. KEPPRA [Suspect]
     Active Substance: LEVETIRACETAM
     Dosage: 2000 MG, 2X/DAY (BID)
     Route: 045
     Dates: start: 20130304, end: 201303
  12. VIMPAT [Suspect]
     Active Substance: LACOSAMIDE
     Indication: OFF LABEL USE
     Dosage: 100 MG, 2X/DAY (BID)
     Route: 045
     Dates: start: 20130122, end: 201303
  13. VIMPAT [Suspect]
     Active Substance: LACOSAMIDE
     Indication: STATUS EPILEPTICUS
     Dosage: 50 MG, 2X/DAY (BID)
     Route: 045
     Dates: start: 20121221, end: 201301
  14. CLONAZEPAM. [Suspect]
     Active Substance: CLONAZEPAM
     Indication: STATUS EPILEPTICUS
     Dosage: UNKNOWN DOSE
     Dates: start: 20121221, end: 201301
  15. PROPOFOL. [Concomitant]
     Active Substance: PROPOFOL
     Indication: STATUS EPILEPTICUS
     Dosage: UNK
     Dates: start: 20130122, end: 20130129

REACTIONS (10)
  - Off label use [Unknown]
  - Status epilepticus [Unknown]
  - Hyponatraemia [Unknown]
  - Teratoma [Fatal]
  - Withdrawal syndrome [Fatal]
  - Drug ineffective [Unknown]
  - Overdose [Unknown]
  - Generalised tonic-clonic seizure [Unknown]
  - Incorrect route of drug administration [Unknown]
  - Partial seizures with secondary generalisation [Unknown]

NARRATIVE: CASE EVENT DATE: 20121127
